FAERS Safety Report 18005056 (Version 3)
Quarter: 2021Q1

REPORT INFORMATION
  Report Type: Report from Study
  Country: US (occurrence: US)
  Receive Date: 20200709
  Receipt Date: 20210312
  Transmission Date: 20210419
  Serious: Yes (Death, Life-Threatening, Other)
  Sender: FDA-Public Use
  Company Number: NVSC2020US187042

PATIENT
  Age: 23 Year
  Sex: Female

DRUGS (3)
  1. FLUDARABINE [Concomitant]
     Active Substance: FLUDARABINE PHOSPHATE
     Indication: CHEMOTHERAPY
     Dosage: UNK
     Route: 065
  2. KYMRIAH [Suspect]
     Active Substance: TISAGENLECLEUCEL
     Indication: ACUTE LYMPHOCYTIC LEUKAEMIA
     Dosage: UNK, ONCE/SINGLE
     Route: 041
     Dates: start: 20191112
  3. CYCLOPHOSPHAMIDE. [Concomitant]
     Active Substance: CYCLOPHOSPHAMIDE
     Indication: CHEMOTHERAPY
     Dosage: UNK
     Route: 065

REACTIONS (23)
  - Pyrexia [Recovered/Resolved]
  - Tremor [Recovered/Resolved]
  - Enterococcal infection [Unknown]
  - Cytomegalovirus infection [Unknown]
  - Staphylococcal infection [Unknown]
  - Thrombocytopenia [Unknown]
  - Lymphocyte count decreased [Unknown]
  - Bacterial infection [Unknown]
  - Posterior reversible encephalopathy syndrome [Recovered/Resolved]
  - Neutrophil count decreased [Recovered/Resolved]
  - White blood cell count decreased [Unknown]
  - Platelet count decreased [Recovered/Resolved]
  - Candida infection [Unknown]
  - Haemorrhagic stroke [Recovered/Resolved]
  - Cytokine release syndrome [Recovered/Resolved]
  - Clostridium difficile infection [Unknown]
  - Hypotension [Recovered/Resolved]
  - Aphasia [Recovered/Resolved]
  - Generalised tonic-clonic seizure [Recovered/Resolved]
  - Coronavirus infection [Unknown]
  - Acute lymphocytic leukaemia recurrent [Fatal]
  - Cytopenia [Unknown]
  - Neurotoxicity [Recovered/Resolved]
